FAERS Safety Report 7465477-6 (Version None)
Quarter: 2011Q2

REPORT INFORMATION
  Report Type: 
  Country: None (occurrence: None)
  Receive Date: 20110509
  Receipt Date: 20090930
  Transmission Date: 20111010
  Serious: Yes (Death, Hospitalization, Other)
  Sender: FDA-Public Use
  Company Number: US-BAYER-200934449NA

PATIENT
  Age: 88 Year
  Sex: Female
  Weight: 74.83 kg

DRUGS (16)
  1. TRASYLOL [Suspect]
     Indication: MITRAL VALVE REPLACEMENT
     Dosage: UNK
     Route: 042
     Dates: start: 20070516, end: 20070516
  2. LASIX [Concomitant]
     Indication: PRODUCT USED FOR UNKNOWN INDICATION
     Dosage: 40 MG, QD
     Route: 048
  3. DETROL [Concomitant]
     Indication: PRODUCT USED FOR UNKNOWN INDICATION
     Dosage: 1 MG, 2 TABS DAILY
     Route: 048
  4. QUINAPRIL [Concomitant]
     Indication: PRODUCT USED FOR UNKNOWN INDICATION
     Dosage: 5 MG, QD
     Route: 048
  5. VERSED [Concomitant]
     Indication: PRODUCT USED FOR UNKNOWN INDICATION
     Dosage: UNK
     Dates: start: 20070516
  6. QVAR 40 [Concomitant]
     Indication: PRODUCT USED FOR UNKNOWN INDICATION
     Dosage: 40 MICROGRAMS AS NEEDED
  7. ETOMIDATE [Concomitant]
     Indication: PRODUCT USED FOR UNKNOWN INDICATION
     Dosage: UNK
     Dates: start: 20070516
  8. FENTANYL [Concomitant]
     Indication: PRODUCT USED FOR UNKNOWN INDICATION
     Dosage: UNK
     Dates: start: 20070516
  9. ACETYLSALICYLIC ACID SRT [Concomitant]
     Indication: PRODUCT USED FOR UNKNOWN INDICATION
     Dosage: 81 MG, QD
     Route: 048
  10. PANCURONIUM BROMIDE [Concomitant]
     Indication: PRODUCT USED FOR UNKNOWN INDICATION
     Dosage: UNK
     Dates: start: 20070516
  11. ZINACEF [Concomitant]
     Indication: PRODUCT USED FOR UNKNOWN INDICATION
     Dosage: UNK
     Dates: start: 20070516
  12. SODIUM CHLORIDE [Concomitant]
     Indication: PRODUCT USED FOR UNKNOWN INDICATION
     Dosage: UNK
     Dates: start: 20070516
  13. ZOSYN [Concomitant]
     Indication: PRODUCT USED FOR UNKNOWN INDICATION
     Dosage: UNK
     Dates: start: 20070516
  14. INSULIN [INSULIN] [Concomitant]
     Indication: PRODUCT USED FOR UNKNOWN INDICATION
     Dosage: UNK
     Dates: start: 20070516
  15. CIPRO [Concomitant]
     Indication: PRODUCT USED FOR UNKNOWN INDICATION
     Dosage: UNK
     Dates: start: 20070516
  16. HEPARIN [Concomitant]
     Indication: PRODUCT USED FOR UNKNOWN INDICATION
     Dosage: 30000 U, UNK
     Dates: start: 20070516

REACTIONS (12)
  - FEAR [None]
  - INJURY [None]
  - RENAL FAILURE [None]
  - EMOTIONAL DISTRESS [None]
  - RENAL INJURY [None]
  - STRESS [None]
  - PAIN [None]
  - DEATH [None]
  - ANXIETY [None]
  - MULTI-ORGAN FAILURE [None]
  - RENAL IMPAIRMENT [None]
  - UNEVALUABLE EVENT [None]
